FAERS Safety Report 4456693-6 (Version None)
Quarter: 2004Q3

REPORT INFORMATION
  Report Type: 
  Country: None (occurrence: None)
  Receive Date: 20040921
  Receipt Date: 20040908
  Transmission Date: 20050211
  Serious: Yes (Hospitalization, Other)
  Sender: FDA-Public Use
  Company Number: 2004061145

PATIENT
  Age: 42 Year
  Sex: Male

DRUGS (5)
  1. LIPITOR [Suspect]
     Indication: HYPERLIPIDAEMIA
     Dosage: ORAL
     Route: 048
     Dates: start: 20031010, end: 20040820
  2. ALLOPURINOL [Concomitant]
  3. CANDESARTAN CILEXETIL (CANDESARTAN CILEXETIL) [Concomitant]
  4. ETHYL ICOSAPENTATE (ETHYL ICOSAPENTATE) [Concomitant]
  5. PHENOBARBITAL TAB [Concomitant]

REACTIONS (5)
  - COMA [None]
  - CONVULSION [None]
  - CREATININE RENAL CLEARANCE DECREASED [None]
  - HAEMODIALYSIS [None]
  - RHABDOMYOLYSIS [None]
